FAERS Safety Report 17332814 (Version 6)
Quarter: 2020Q2

REPORT INFORMATION
  Report Type: Spontaneous
  Country: US (occurrence: US)
  Receive Date: 20200128
  Receipt Date: 20200507
  Transmission Date: 20200713
  Serious: No
  Sender: FDA-Public Use
  Company Number: US-AMGEN-USASP2020012026

PATIENT
  Age: 62 Year
  Sex: Female
  Weight: 68.93 kg

DRUGS (1)
  1. REPATHA [Suspect]
     Active Substance: EVOLOCUMAB
     Indication: BLOOD CHOLESTEROL INCREASED
     Dosage: 140 MILLIGRAM, Q2WK
     Route: 065
     Dates: start: 20191209

REACTIONS (4)
  - Wrong technique in product usage process [Unknown]
  - Device defective [Unknown]
  - Chest pain [Unknown]
  - Underdose [Unknown]

NARRATIVE: CASE EVENT DATE: 20200114
